FAERS Safety Report 14815465 (Version 2)
Quarter: 2018Q2

REPORT INFORMATION
  Report Type: Spontaneous
  Country: US (occurrence: US)
  Receive Date: 20180426
  Receipt Date: 20180511
  Transmission Date: 20180711
  Serious: Yes (Other)
  Sender: FDA-Public Use
  Company Number: US-TEVA-2018-US-884959

PATIENT
  Age: 2 Year
  Sex: Female

DRUGS (1)
  1. RANITIDINE. [Suspect]
     Active Substance: RANITIDINE
     Indication: GASTROOESOPHAGEAL REFLUX DISEASE
     Dosage: 3 AND 1/4TH TEASPOONS OF DOSE
     Route: 065

REACTIONS (7)
  - Gait disturbance [Unknown]
  - Eye disorder [Unknown]
  - Overdose [Unknown]
  - Lethargy [Unknown]
  - Tremor [Unknown]
  - Drug prescribing error [Unknown]
  - Drug dispensing error [Unknown]
